FAERS Safety Report 14831695 (Version 1)
Quarter: 2018Q2

REPORT INFORMATION
  Report Type: Spontaneous
  Country: US (occurrence: US)
  Receive Date: 20180408
  Receipt Date: 20180408
  Transmission Date: 20180711
  Serious: Yes (Other)
  Sender: FDA-Public Use
  Company Number: None

PATIENT
  Age: 75 Year
  Sex: Male
  Weight: 87.75 kg

DRUGS (7)
  1. TURMERIC [Concomitant]
     Active Substance: HERBALS\TURMERIC
  2. TAMSULOSIN [Concomitant]
     Active Substance: TAMSULOSIN
  3. LOSARTIN [Concomitant]
     Active Substance: LOSARTAN
  4. VICTOZA [Suspect]
     Active Substance: LIRAGLUTIDE
     Indication: DRUG THERAPY
     Route: 058
     Dates: start: 20180112, end: 20180312
  5. METFORMIN [Concomitant]
     Active Substance: METFORMIN HYDROCHLORIDE
  6. CRESTOR [Concomitant]
     Active Substance: ROSUVASTATIN CALCIUM
  7. GLIPIZIDE XL [Concomitant]
     Active Substance: GLIPIZIDE

REACTIONS (2)
  - Rash [None]
  - Skin mass [None]

NARRATIVE: CASE EVENT DATE: 20180214
